FAERS Safety Report 10550436 (Version 1)
Quarter: 2014Q4

REPORT INFORMATION
  Report Type: Spontaneous
  Country: US (occurrence: US)
  Receive Date: 20141029
  Receipt Date: 20141029
  Transmission Date: 20150529
  Serious: No
  Sender: FDA-Public Use
  Company Number: US-TEVA-455297USA

PATIENT
  Age: 60 Year
  Sex: Male

DRUGS (1)
  1. MODAFINIL. [Suspect]
     Active Substance: MODAFINIL
     Dosage: 50 MILLIGRAM DAILY;
     Route: 048

REACTIONS (1)
  - Drug effect decreased [Unknown]
